FAERS Safety Report 7461190-X (Version None)
Quarter: 2011Q2

REPORT INFORMATION
  Report Type: 
  Country: None (occurrence: None)
  Receive Date: 20110505
  Receipt Date: 20110426
  Transmission Date: 20111010
  Serious: Yes (Other)
  Sender: FDA-Public Use
  Company Number: CL-ASTRAZENECA-2011SE25487

PATIENT
  Age: 68 Year
  Sex: Female

DRUGS (3)
  1. BUDOSENIDE FORMOTEROL [Suspect]
     Route: 055
  2. SERETIDE [Concomitant]
     Dates: start: 20050101
  3. BUDOSENIDE FORMOTEROL [Suspect]
     Route: 055

REACTIONS (3)
  - SYNCOPE [None]
  - HYPOTENSION [None]
  - TACHYCARDIA [None]
